FAERS Safety Report 22095734 (Version 2)
Quarter: 2024Q3

REPORT INFORMATION
  Report Type: Spontaneous
  Country: US (occurrence: US)
  Receive Date: 20230314
  Receipt Date: 20240916
  Transmission Date: 20241016
  Serious: No
  Sender: PFIZER
  Company Number: US-PFIZER INC-PV202300046804

PATIENT
  Age: 86 Year
  Sex: Female

DRUGS (1)
  1. IBRANCE [Suspect]
     Active Substance: PALBOCICLIB
     Indication: Breast cancer metastatic
     Dosage: 100 MG TAKE 1 TABLET BY MOUTH DAILY 21 DAYS CONSECUTIVE DAYS FOLLOWED BY 7 DAYS OFF
     Route: 048

REACTIONS (1)
  - Ear disorder [Unknown]
